FAERS Safety Report 15995947 (Version 1)
Quarter: 2019Q1

REPORT INFORMATION
  Report Type: Spontaneous
  Country: US (occurrence: US)
  Receive Date: 20190217
  Receipt Date: 20190217
  Transmission Date: 20190418
  Serious: No
  Sender: FDA-Public Use
  Company Number: None

PATIENT
  Age: 76 Year
  Sex: Female

DRUGS (1)
  1. EXJADE [Suspect]
     Active Substance: DEFERASIROX
     Route: 048
     Dates: start: 201901

REACTIONS (4)
  - Nausea [None]
  - Vomiting [None]
  - Hypoaesthesia oral [None]
  - Pain [None]

NARRATIVE: CASE EVENT DATE: 20190217
